FAERS Safety Report 8766190 (Version 1)
Quarter: 2012Q4

REPORT INFORMATION
  Report Type: 
  Country: CH (occurrence: CH)
  Receive Date: 20120904
  Receipt Date: 20120904
  Transmission Date: 20130627
  Serious: Yes (Hospitalization)
  Sender: FDA-Public Use
  Company Number: CH-WATSON-2012-15300

PATIENT
  Age: 73 Year
  Sex: Female

DRUGS (3)
  1. DICLOFENAC (UNKNOWN) [Suspect]
     Indication: FLANK PAIN
     Dosage: UNK
     Route: 065
  2. COLOPHOS [Suspect]
     Indication: COLONOSCOPY
     Dosage: UNK
     Route: 065
  3. CALCIUM [Suspect]
     Indication: OSTEOPOROSIS
     Dosage: UNK
     Route: 065

REACTIONS (3)
  - Renal failure acute [Recovering/Resolving]
  - Acute phosphate nephropathy [Recovering/Resolving]
  - Perirenal haematoma [None]
